FAERS Safety Report 4667489-4 (Version None)
Quarter: 2005Q2

REPORT INFORMATION
  Report Type: 
  Country: None (occurrence: None)
  Receive Date: 20050520
  Receipt Date: 20050512
  Transmission Date: 20051028
  Serious: Yes (Death, Life-Threatening)
  Sender: FDA-Public Use
  Company Number: 200514153US

PATIENT
  Sex: Female

DRUGS (5)
  1. LOVENOX [Suspect]
     Indication: ACUTE MYOCARDIAL INFARCTION
     Route: 058
     Dates: start: 20050101, end: 20050101
  2. PLAVIX [Suspect]
     Dates: start: 20050101, end: 20050101
  3. ASPIRIN [Suspect]
     Dosage: DOSE: NOT PROVIDED
     Dates: start: 20050101, end: 20050101
  4. HEPARIN [Suspect]
     Indication: THERAPEUTIC PROCEDURE
     Dates: start: 20041201, end: 20041201
  5. INTEGRILIN [Suspect]
     Indication: ACUTE MYOCARDIAL INFARCTION
     Route: 042
     Dates: start: 20041201, end: 20050101

REACTIONS (4)
  - DEATH [None]
  - HAEMOGLOBIN DECREASED [None]
  - HAEMORRHAGE INTRACRANIAL [None]
  - VOMITING [None]
